FAERS Safety Report 4411681-0 (Version None)
Quarter: 2004Q3

REPORT INFORMATION
  Report Type: 
  Country: None (occurrence: None)
  Receive Date: 20040730
  Receipt Date: 20040505
  Transmission Date: 20050211
  Serious: Yes (Hospitalization)
  Sender: FDA-Public Use
  Company Number: PHNU2004DE01738

PATIENT
  Age: 5 Year
  Sex: Female
  Weight: 20 kg

DRUGS (3)
  1. SANDIMMUNE [Suspect]
     Indication: UVEITIS
     Dosage: 3 MG/KG, UNK
     Route: 048
     Dates: start: 20040420
  2. SANDIMMUNE [Suspect]
     Dosage: 40 MG, BID
     Route: 048
     Dates: start: 20040502
  3. METHOTREXATE [Concomitant]
     Indication: UVEITIS
     Dosage: 10 MG, QW
     Dates: start: 20030201

REACTIONS (3)
  - DRUG LEVEL DECREASED [None]
  - FLUSHING [None]
  - TACHYCARDIA [None]
